FAERS Safety Report 10354456 (Version 1)
Quarter: 2014Q3

REPORT INFORMATION
  Report Type: Spontaneous
  Country: US (occurrence: US)
  Receive Date: 20140731
  Receipt Date: 20140731
  Transmission Date: 20150326
  Serious: No
  Sender: FDA-Public Use
  Company Number: US-PFIZER INC-2014209799

PATIENT
  Age: 47 Year
  Sex: Female
  Weight: 81.63 kg

DRUGS (2)
  1. LYRICA [Suspect]
     Active Substance: PREGABALIN
     Indication: FIBROMYALGIA
     Dosage: 200MG AT DINNER TIME AND 400MG AT BED TIME, 2X/DAY
     Dates: start: 2010
  2. RELPAX [Suspect]
     Active Substance: ELETRIPTAN HYDROBROMIDE
     Indication: MIGRAINE
     Dosage: 40 MG, AS NEEDED (WHENEVER REQUIRED SHE TOOK IT FOR TWO TIMES A DAY)
     Route: 048
     Dates: start: 2008

REACTIONS (2)
  - Carpal tunnel syndrome [Unknown]
  - Muscular weakness [Unknown]
